FAERS Safety Report 8100126 (Version 3)
Quarter: 2016Q4

REPORT INFORMATION
  Report Type: Report from Study
  Country: US (occurrence: US)
  Receive Date: 20110822
  Receipt Date: 20161005
  Transmission Date: 20170207
  Serious: Yes (Other)
  Sender: FDA-Public Use
  Company Number: US-ROCHE-796819

PATIENT
  Age: 73 Year
  Sex: Female
  Weight: 102 kg

DRUGS (4)
  1. FOSBRETABULIN [Suspect]
     Active Substance: FOSBRETABULIN
     Indication: OVARIAN EPITHELIAL CANCER
     Dosage: FREQUENCY: OVER 10 MIN ON DAY 1. LAST DOSE PRIOR TO SAE  18 JULY 2011.
     Route: 042
  2. FLUOXETINE [Suspect]
     Active Substance: FLUOXETINE HYDROCHLORIDE
     Route: 065
  3. FLUOXETINE [Suspect]
     Active Substance: FLUOXETINE HYDROCHLORIDE
     Indication: PRODUCT USED FOR UNKNOWN INDICATION
     Route: 065
  4. BEVACIZUMAB [Suspect]
     Active Substance: BEVACIZUMAB
     Indication: OVARIAN EPITHELIAL CANCER
     Dosage: IV OVER 30-90 MINUTES ON DAY 1, LASE DOSE ON 18 JULY 2011, TOTAL DOSE: 1515 MG
     Route: 042

REACTIONS (4)
  - Syncope [Unknown]
  - Electrocardiogram QT interval [Unknown]
  - Electrocardiogram QT prolonged [Recovered/Resolved]
  - Hypertension [Recovered/Resolved]

NARRATIVE: CASE EVENT DATE: 20110718
